FAERS Safety Report 5914114-8 (Version None)
Quarter: 2008Q4

REPORT INFORMATION
  Report Type: 
  Country: None (occurrence: None)
  Receive Date: 20081009
  Receipt Date: 20080930
  Transmission Date: 20090506
  Serious: Yes (Other)
  Sender: FDA-Public Use
  Company Number: CA-WYE-H06260108

PATIENT
  Age: 70 Year
  Sex: Female

DRUGS (8)
  1. PANTOPRAZOLE SODIUM [Suspect]
     Indication: DYSPEPSIA
     Dosage: UNKNOWN
     Route: 048
     Dates: start: 20060101, end: 20060101
  2. PANTOPRAZOLE SODIUM [Interacting]
     Dosage: UNKNOWN
     Route: 048
     Dates: start: 20071003, end: 20071004
  3. SYNTHROID [Concomitant]
     Dosage: UNKNOWN
  4. SYNTHROID [Concomitant]
     Dosage: UNKNOWN
  5. LISINOPRIL [Concomitant]
     Dosage: UNKNOWN
  6. LIPITOR [Interacting]
     Dosage: UNKNOWN
     Dates: start: 19960101, end: 20060101
  7. LIPITOR [Interacting]
     Dosage: UNKNOWN
     Route: 048
     Dates: start: 20060101
  8. APO-RANITIDINE [Concomitant]
     Dosage: UNKNOWN

REACTIONS (4)
  - CARDIAC FLUTTER [None]
  - DRUG INTERACTION [None]
  - GAIT DISTURBANCE [None]
  - MALAISE [None]
